FAERS Safety Report 7078605-1 (Version None)
Quarter: 2010Q4

REPORT INFORMATION
  Report Type: 
  Country: None (occurrence: None)
  Receive Date: 20101101
  Receipt Date: 20101101
  Transmission Date: 20110411
  Serious: Yes (Other)
  Sender: FDA-Public Use
  Company Number: None

PATIENT
  Age: 40 Year
  Sex: Female
  Weight: 66.6788 kg

DRUGS (2)
  1. VENLAFAXINE [Suspect]
     Indication: DEPRESSION
     Dosage: 75 MG DAILY PO
     Route: 048
     Dates: start: 20100905, end: 20101030
  2. EFFEXOR XR [Concomitant]

REACTIONS (4)
  - DEPRESSION [None]
  - DISTURBANCE IN ATTENTION [None]
  - NIGHTMARE [None]
  - PRODUCT SUBSTITUTION ISSUE [None]
